FAERS Safety Report 5149959-8 (Version None)
Quarter: 2006Q4

REPORT INFORMATION
  Report Type: 
  Country: None (occurrence: None)
  Receive Date: 20061108
  Receipt Date: 20061025
  Transmission Date: 20070319
  Serious: Yes (Hospitalization, Other)
  Sender: FDA-Public Use
  Company Number: 2006131516

PATIENT
  Sex: Female
  Weight: 122.4712 kg

DRUGS (7)
  1. LYRICA [Suspect]
     Indication: DIABETIC NEUROPATHY
  2. ADVAIR           (FLUTICASONE PROPIONATE, SALMETEROL) [Concomitant]
  3. AMBIEN [Concomitant]
  4. ZOLOFT [Concomitant]
  5. OXYCODONE HCL [Concomitant]
  6. GLYBURIDE [Concomitant]
  7. METFORMIN XR              (METFORMIN) [Concomitant]

REACTIONS (5)
  - C-REACTIVE PROTEIN INCREASED [None]
  - PAIN IN EXTREMITY [None]
  - RED BLOOD CELL SEDIMENTATION RATE INCREASED [None]
  - URINARY TRACT INFECTION [None]
  - WHITE BLOOD CELL COUNT INCREASED [None]
